FAERS Safety Report 17551360 (Version 1)
Quarter: 2020Q1

REPORT INFORMATION
  Report Type: Spontaneous
  Country: US (occurrence: US)
  Receive Date: 20200317
  Receipt Date: 20200317
  Transmission Date: 20200409
  Serious: No
  Sender: FDA-Public Use
  Company Number: US-UPSHER-SMITH LABORATORIES, LLC-2019USL00407

PATIENT
  Sex: Male

DRUGS (4)
  1. PREVALITE [Suspect]
     Active Substance: CHOLESTYRAMINE
     Dosage: 8 G
  2. PREVALITE [Suspect]
     Active Substance: CHOLESTYRAMINE
     Dosage: 12 G
  3. PREVALITE [Suspect]
     Active Substance: CHOLESTYRAMINE
     Indication: DIARRHOEA
     Dosage: 2 G
  4. PREVALITE [Suspect]
     Active Substance: CHOLESTYRAMINE
     Dosage: 4 G

REACTIONS (2)
  - Drug ineffective for unapproved indication [Unknown]
  - Constipation [Recovered/Resolved]
